FAERS Safety Report 18627887 (Version 4)
Quarter: 2021Q1

REPORT INFORMATION
  Report Type: Spontaneous
  Country: US (occurrence: US)
  Receive Date: 20201217
  Receipt Date: 20210308
  Transmission Date: 20210419
  Serious: No
  Sender: FDA-Public Use
  Company Number: US-PFIZER INC-2020491458

PATIENT
  Age: 17 Year
  Sex: Male

DRUGS (2)
  1. GENOTROPIN [Suspect]
     Active Substance: SOMATROPIN
     Indication: GROWTH HORMONE DEFICIENCY
     Dosage: 2.4 MG, ALTERNATE DAY
     Dates: start: 20201209
  2. GENOTROPIN [Suspect]
     Active Substance: SOMATROPIN
     Dosage: 2.2 MG, ALTERNATE DAY
     Dates: start: 20201209

REACTIONS (8)
  - Device use error [Unknown]
  - Injection site pruritus [Unknown]
  - Off label use [Unknown]
  - Injection site mass [Unknown]
  - Product use issue [Unknown]
  - Drug dose omission by device [Unknown]
  - Injection site erythema [Unknown]
  - Device difficult to use [Unknown]

NARRATIVE: CASE EVENT DATE: 202012
